FAERS Safety Report 20734069 (Version 3)
Quarter: 2022Q3

REPORT INFORMATION
  Report Type: Spontaneous
  Country: JP (occurrence: JP)
  Receive Date: 20220421
  Receipt Date: 20220714
  Transmission Date: 20221027
  Serious: Yes (Hospitalization, Other)
  Sender: FDA-Public Use
  Company Number: JP-AMGEN-JPNSP2022049031

PATIENT
  Age: 81 Year
  Sex: Female

DRUGS (5)
  1. EVENITY [Suspect]
     Active Substance: ROMOSOZUMAB-AQQG
     Indication: Osteoporosis
     Dosage: 210 MILLIGRAM, QMO
     Route: 058
     Dates: start: 20210320, end: 20220204
  2. EVENITY [Suspect]
     Active Substance: ROMOSOZUMAB-AQQG
     Indication: Spinal fracture
  3. EVENITY [Suspect]
     Active Substance: ROMOSOZUMAB-AQQG
     Indication: Bone density decreased
  4. ELDECALCITOL [Concomitant]
     Active Substance: ELDECALCITOL
     Indication: Osteoporosis
     Dosage: 0.75 MICROGRAM, QD
     Dates: start: 201902
  5. DOTINURAD [Concomitant]
     Active Substance: DOTINURAD
     Indication: Hyperuricaemia
     Dosage: 2 MILLIGRAM, QD
     Dates: start: 201902

REACTIONS (4)
  - Intracranial aneurysm [Unknown]
  - Carotid arteriosclerosis [Unknown]
  - Ischaemic cerebral infarction [Recovered/Resolved with Sequelae]
  - Myocardial infarction [Recovered/Resolved with Sequelae]

NARRATIVE: CASE EVENT DATE: 20220220
